FAERS Safety Report 10354560 (Version 2)
Quarter: 2014Q3

REPORT INFORMATION
  Report Type: Spontaneous
  Country: US (occurrence: US)
  Receive Date: 20140731
  Receipt Date: 20140731
  Transmission Date: 20150326
  Serious: Yes (Hospitalization)
  Sender: FDA-Public Use
  Company Number: US-009507513-2010SP059989

PATIENT
  Sex: Female
  Weight: 67.59 kg

DRUGS (1)
  1. NUVARING [Suspect]
     Active Substance: ETHINYL ESTRADIOL\ETONOGESTREL
     Indication: OVARIAN CYST
     Dosage: UNK
     Route: 067
     Dates: start: 200808, end: 20081222

REACTIONS (4)
  - Pain in extremity [Unknown]
  - Deep vein thrombosis [Recovered/Resolved]
  - Vulvovaginal pruritus [Unknown]
  - Off label use [Unknown]

NARRATIVE: CASE EVENT DATE: 200811
